FAERS Safety Report 21020536 (Version 1)
Quarter: 2022Q2

REPORT INFORMATION
  Report Type: Spontaneous
  Country: US (occurrence: US)
  Receive Date: 20220629
  Receipt Date: 20220629
  Transmission Date: 20220720
  Serious: Yes (Hospitalization)
  Sender: FDA-Public Use
  Company Number: None

PATIENT

DRUGS (8)
  1. CHLORHEXIDINE [Suspect]
     Active Substance: CHLORHEXIDINE
     Indication: Product used for unknown indication
  2. EPOPROSTENOL SODIUM [Suspect]
     Active Substance: EPOPROSTENOL SODIUM
     Indication: Pulmonary arterial hypertension
     Dosage: 22 NANOGRAM PER KILOGRAM (VELETRI 1.5 MG VIAL INTRAVENOUS CONTINUOUS)
     Route: 042
  3. EPOPROSTENOL SODIUM [Suspect]
     Active Substance: EPOPROSTENOL SODIUM
     Dosage: 25 NANOGRAM PER KILOGRAM (VELETRI 1.5 MG VIAL INTRAVENOUS CONTINUOUS)
  4. EPOPROSTENOL SODIUM [Suspect]
     Active Substance: EPOPROSTENOL SODIUM
     Dosage: 29 NANOGRAM PER KILOGRAM(VELETRI 1.5 MG VIAL INTRAVENOUS CONTINUOUS)
  5. EPOPROSTENOL SODIUM [Suspect]
     Active Substance: EPOPROSTENOL SODIUM
     Dosage: 17 NANOGRAM PER KILOGRAM(VELETRI 1.5 MG VIAL INTRAVENOUS CONTINUOUS)
  6. SELEXIPAG [Suspect]
     Active Substance: SELEXIPAG
     Indication: Pulmonary arterial hypertension
     Dosage: 200 MICROGRAM
     Dates: end: 20220225
  7. TADALAFIL [Concomitant]
     Active Substance: TADALAFIL
  8. LETAIRIS [Concomitant]
     Active Substance: AMBRISENTAN

REACTIONS (8)
  - Vascular device infection [Unknown]
  - Diarrhoea [Not Recovered/Not Resolved]
  - Dermatitis contact [Unknown]
  - Catheter site pruritus [Unknown]
  - Fatigue [Not Recovered/Not Resolved]
  - Dyspnoea [Not Recovered/Not Resolved]
  - Catheter site erythema [Unknown]
  - Catheter site discharge [Unknown]

NARRATIVE: CASE EVENT DATE: 20220422
